FAERS Safety Report 5790538-7 (Version None)
Quarter: 2008Q2

REPORT INFORMATION
  Report Type: 
  Country: None (occurrence: None)
  Receive Date: 20080626
  Receipt Date: 20080430
  Transmission Date: 20081010
  Serious: No
  Sender: FDA-Public Use
  Company Number: A0725568A

PATIENT

DRUGS (3)
  1. ALLI [Suspect]
  2. METAMUCIL [Concomitant]
  3. OMEGA 3-FATTY ACID [Concomitant]

REACTIONS (2)
  - DIARRHOEA [None]
  - FLATULENCE [None]
